FAERS Safety Report 4312835-4 (Version None)
Quarter: 2004Q1

REPORT INFORMATION
  Report Type: 
  Country: None (occurrence: None)
  Receive Date: 20040304
  Receipt Date: 20040218
  Transmission Date: 20041129
  Serious: Yes (Life-Threatening)
  Sender: FDA-Public Use
  Company Number: 2004-DE-00800GD

PATIENT
  Age: 2 Month
  Sex: Female

DRUGS (5)
  1. CYCLOPHOSPHAMIDE [Suspect]
     Indication: STEM CELL TRANSPLANT
     Dosage: 50 MG/KG INCE DAILY, IV
     Route: 042
  2. METHOTREXATE [Suspect]
     Indication: GRAFT VERSUS HOST DISEASE
     Dosage: 10/10 MG/M2 ON DAYS 1,3+/-6
  3. METHOTREXATE [Suspect]
     Indication: PROPHYLAXIS
     Dosage: 10/10 MG/M2 ON DAYS 1,3+/-6
  4. BUSULPHAN (BUSULFAN) [Suspect]
     Indication: STEM CELL TRANSPLANT
     Dosage: IV
     Route: 042
  5. STEROIDS [Concomitant]

REACTIONS (3)
  - CHEST X-RAY ABNORMAL [None]
  - PULMONARY HYPERTENSION [None]
  - VENTRICULAR HYPERTROPHY [None]
